FAERS Safety Report 8886952 (Version 1)
Quarter: 2012Q4

REPORT INFORMATION
  Report Type: 
  Country: BR (occurrence: BR)
  Receive Date: 20121105
  Receipt Date: 20121105
  Transmission Date: 20130627
  Serious: Yes (Other)
  Sender: FDA-Public Use
  Company Number: PHHY2012BR099914

PATIENT
  Sex: Male
  Weight: 107 kg

DRUGS (2)
  1. RITALINA [Suspect]
     Indication: MEMORY IMPAIRMENT
     Dosage: 01 DF, UNK
     Route: 048
  2. RITALINA [Suspect]
     Dosage: 2 DF, UNK
     Route: 048
     Dates: end: 20121026

REACTIONS (5)
  - Syncope [Recovered/Resolved]
  - Excessive eye blinking [Recovered/Resolved]
  - Feeling abnormal [Recovered/Resolved]
  - Dizziness [Recovered/Resolved]
  - Visual impairment [Recovered/Resolved]
